FAERS Safety Report 9746124 (Version 2)
Quarter: 2013Q4

REPORT INFORMATION
  Report Type: Spontaneous
  Country: US (occurrence: US)
  Receive Date: 20131211
  Receipt Date: 20131211
  Transmission Date: 20140711
  Serious: Yes (Hospitalization)
  Sender: FDA-Public Use
  Company Number: US-GILEAD-2009-0024879

PATIENT
  Age: 47 Year
  Sex: Male
  Weight: 85 kg

DRUGS (11)
  1. ATRIPLA [Suspect]
     Indication: HIV INFECTION
     Dates: start: 20070507
  2. AMBIEN [Concomitant]
     Indication: ANXIETY
     Dates: start: 2005
  3. NITROQUICK [Concomitant]
     Indication: ANXIETY
     Dates: start: 2005
  4. ASPIRIN [Concomitant]
     Dates: start: 2005
  5. ATENOLOL [Concomitant]
     Dates: start: 2004
  6. ZETIA [Concomitant]
     Dates: start: 2005
  7. TRICOR [Concomitant]
     Dates: start: 2005
  8. CRESTOR [Concomitant]
     Dates: start: 200206
  9. PLAVIX [Concomitant]
     Dates: start: 2005
  10. TAGAMET [Concomitant]
     Dates: start: 200206
  11. LOPERAMIDE [Concomitant]
     Indication: DIARRHOEA
     Dates: start: 2005

REACTIONS (1)
  - Renal failure acute [Not Recovered/Not Resolved]
